FAERS Safety Report 23092410 (Version 1)
Quarter: 2023Q4

REPORT INFORMATION
  Report Type: Spontaneous
  Country: IT (occurrence: IT)
  Receive Date: 20231021
  Receipt Date: 20231021
  Transmission Date: 20240109
  Serious: Yes (Other)
  Sender: FDA-Public Use
  Company Number: None

PATIENT
  Age: 74 Year
  Sex: Male

DRUGS (4)
  1. FLUOROURACIL [Suspect]
     Active Substance: FLUOROURACIL
     Indication: Colon cancer
     Dosage: REACTIONS MANIFESTED AFTER THE FIRST CYCLE - THERAPY EVERY 14 DAYS - START OF THERAPY 02/15/2023
     Dates: start: 20230215, end: 20230215
  2. FLUOROURACIL [Suspect]
     Active Substance: FLUOROURACIL
     Dosage: REACTIONS MANIFESTED AFTER THE FIRST CYCLE - THERAPY EVERY 14 DAYS - START OF THERAPY 02/15/2023
     Dates: start: 20230215, end: 20230215
  3. OXALIPLATIN [Suspect]
     Active Substance: OXALIPLATIN
     Indication: Colon cancer
     Dosage: REACTIONS MANIFESTED AFTER THE FIRST CYCLE - THERAPY EVERY 14 DAYS - START OF THERAPY 02/15/2023
     Dates: start: 20230215, end: 20230215
  4. ACIDO LEVO FOLINICO [Concomitant]
     Indication: Product used for unknown indication

REACTIONS (1)
  - Leukopenia [Not Recovered/Not Resolved]

NARRATIVE: CASE EVENT DATE: 20230227
